FAERS Safety Report 23931657 (Version 2)
Quarter: 2024Q3

REPORT INFORMATION
  Report Type: Spontaneous
  Country: US (occurrence: US)
  Receive Date: 20240603
  Receipt Date: 20240902
  Transmission Date: 20241016
  Serious: No
  Sender: BRISTOL MYERS SQUIBB
  Company Number: US-BRISTOL-MYERS SQUIBB COMPANY-2024-087979

PATIENT
  Age: 39 Year
  Sex: Female
  Weight: 78.47 kg

DRUGS (2)
  1. OPDIVO [Suspect]
     Active Substance: NIVOLUMAB
     Indication: Cervix carcinoma
  2. YERVOY [Suspect]
     Active Substance: IPILIMUMAB
     Indication: Cervix carcinoma
     Dosage: 200 MG , 50MG VIAL

REACTIONS (4)
  - Chest pain [Unknown]
  - Weight decreased [Unknown]
  - Off label use [Unknown]
  - Stress [Unknown]
